FAERS Safety Report 5067919-2 (Version None)
Quarter: 2006Q3

REPORT INFORMATION
  Report Type: 
  Country: None (occurrence: None)
  Receive Date: 20060728
  Receipt Date: 20060711
  Transmission Date: 20061208
  Serious: Yes (Other)
  Sender: FDA-Public Use
  Company Number: NL200607001740

PATIENT
  Age: 13 Year
  Sex: Male

DRUGS (4)
  1. STRATTERA [Suspect]
     Dosage: 30 MG, DAILY (1/D); ORAL, 54 MG, DAILY (1/D)
     Route: 048
  2. DEPAKENE [Concomitant]
  3. TEGRETOL [Concomitant]
  4. RIVOTRIL /NOR/ (CLONAZEPAM) [Concomitant]

REACTIONS (3)
  - CONDITION AGGRAVATED [None]
  - CONVULSION [None]
  - GRAND MAL CONVULSION [None]
